FAERS Safety Report 12656356 (Version 1)
Quarter: 2016Q3

REPORT INFORMATION
  Report Type: Spontaneous
  Country: US (occurrence: US)
  Receive Date: 20160816
  Receipt Date: 20160816
  Transmission Date: 20161109
  Serious: No
  Sender: FDA-Public Use
  Company Number: US-PERRIGO-15US008197

PATIENT
  Sex: Male
  Weight: 80.27 kg

DRUGS (2)
  1. LORATADINE. [Suspect]
     Active Substance: LORATADINE
     Indication: DIZZINESS
     Dosage: 10 MG, QD
     Route: 048
     Dates: start: 2015, end: 201507
  2. LORATADINE. [Suspect]
     Active Substance: LORATADINE
     Dosage: 20 MG, QD
     Route: 048
     Dates: start: 201507

REACTIONS (2)
  - No adverse event [Unknown]
  - Off label use [Unknown]

NARRATIVE: CASE EVENT DATE: 2015
